FAERS Safety Report 21996357 (Version 1)
Quarter: 2023Q1

REPORT INFORMATION
  Report Type: Spontaneous
  Country: US (occurrence: None)
  Receive Date: 20230214
  Receipt Date: 20230214
  Transmission Date: 20230417
  Serious: Yes (Hospitalization)
  Sender: FDA-Public Use
  Company Number: None

PATIENT
  Sex: Female

DRUGS (1)
  1. DEFERIPRONE [Suspect]
     Active Substance: DEFERIPRONE
     Indication: Type 2 diabetes mellitus
     Route: 048
     Dates: start: 20221125

REACTIONS (3)
  - Blood test [None]
  - Diagnostic procedure [None]
  - Therapy interrupted [None]
